FAERS Safety Report 4720326-1 (Version None)
Quarter: 2005Q3

REPORT INFORMATION
  Report Type: 
  Country: None (occurrence: None)
  Receive Date: 20050719
  Receipt Date: 20050701
  Transmission Date: 20060218
  Serious: Yes (Other)
  Sender: FDA-Public Use
  Company Number: 2005BI007760

PATIENT
  Age: 49 Year
  Sex: Female
  Weight: 90.2658 kg

DRUGS (2)
  1. AVONEX [Suspect]
     Indication: MULTIPLE SCLEROSIS
     Dosage: 30 UG;Q;W; IM
     Route: 030
     Dates: start: 19990611, end: 20031101
  2. AVONEX [Suspect]
     Indication: MULTIPLE SCLEROSIS
     Dosage: 30 UG;QW; IM
     Route: 030
     Dates: start: 20031101

REACTIONS (8)
  - AORTIC VALVE STENOSIS [None]
  - DIFFICULTY IN WALKING [None]
  - FEELING ABNORMAL [None]
  - HYPERTENSION [None]
  - PAIN IN EXTREMITY [None]
  - PHARYNGOLARYNGEAL PAIN [None]
  - PROGRESSIVE MULTIPLE SCLEROSIS [None]
  - THYROID NEOPLASM [None]
